FAERS Safety Report 12711953 (Version 1)
Quarter: 2016Q3

REPORT INFORMATION
  Report Type: Report from Study
  Country: CO (occurrence: CO)
  Receive Date: 20160902
  Receipt Date: 20160902
  Transmission Date: 20161109
  Serious: Yes (Other)
  Sender: FDA-Public Use
  Company Number: CO-SA-2016SA158911

PATIENT
  Age: 25 Year
  Sex: Female
  Weight: 76 kg

DRUGS (1)
  1. LEMTRADA [Suspect]
     Active Substance: ALEMTUZUMAB
     Indication: MULTIPLE SCLEROSIS
     Route: 042
     Dates: start: 20160622, end: 20160626

REACTIONS (6)
  - Leukopenia [Not Recovered/Not Resolved]
  - Dizziness [Not Recovered/Not Resolved]
  - Neutrophil percentage abnormal [Unknown]
  - Asymptomatic bacteriuria [Not Recovered/Not Resolved]
  - Lymphocyte percentage abnormal [Unknown]
  - Urinary sediment present [Unknown]

NARRATIVE: CASE EVENT DATE: 201606
